FAERS Safety Report 7138270-1 (Version None)
Quarter: 2010Q4

REPORT INFORMATION
  Report Type: 
  Country: None (occurrence: None)
  Receive Date: 20101104
  Receipt Date: 20100601
  Transmission Date: 20110411
  Serious: Yes (Other)
  Sender: FDA-Public Use
  Company Number: US-WYE-H15640410

PATIENT
  Age: 66 Year
  Sex: Female
  Weight: 88.53 kg

DRUGS (5)
  1. ZOSYN [Suspect]
     Indication: INFECTION
     Dosage: UNKNOWN DOSE EVERY 6 HOURS, INTRAVENOUS
     Route: 042
     Dates: start: 20100527, end: 20100530
  2. NEXIUM [Concomitant]
  3. SODUM CHLORIDE (SODIUM CHLORIDE) [Concomitant]
  4. LEXAPRO [Concomitant]
  5. REMERON [Concomitant]

REACTIONS (4)
  - APHAGIA [None]
  - DYSGEUSIA [None]
  - NASAL ODOUR [None]
  - RETCHING [None]
